FAERS Safety Report 6718497-0 (Version None)
Quarter: 2010Q2

REPORT INFORMATION
  Report Type: 
  Country: None (occurrence: None)
  Receive Date: 20100504
  Receipt Date: 20100420
  Transmission Date: 20101027
  Serious: Yes (Hospitalization)
  Sender: FDA-Public Use
  Company Number: DSU-2010-01718

PATIENT
  Age: 94 Year
  Sex: Female

DRUGS (1)
  1. BENICAR [Suspect]
     Indication: HYPERTENSION
     Dosage: 20 MG (20 MG, QD), PER ORAL, 40 MG (40 MG, QD), PER ORAL, 40 MG (40 MG, QD, PER ORAL
     Route: 048

REACTIONS (1)
  - DIARRHOEA [None]
